FAERS Safety Report 7215387-4 (Version None)
Quarter: 2011Q1

REPORT INFORMATION
  Report Type: 
  Country: None (occurrence: None)
  Receive Date: 20110104
  Receipt Date: 20110104
  Transmission Date: 20110831
  Serious: Yes (Hospitalization)
  Sender: FDA-Public Use
  Company Number: None

PATIENT
  Age: 73 Year
  Sex: Male

DRUGS (2)
  1. HYDROCHLOROTHIAZIDE [Suspect]
     Dosage: 12.5 MG BID PO
     Route: 048
     Dates: start: 20071120, end: 20101115
  2. ENALAPRIL MALEATE [Suspect]
     Dosage: 20 MG BID PO
     Route: 048
     Dates: start: 20051220, end: 20101210

REACTIONS (3)
  - DERMATITIS [None]
  - CELLULITIS [None]
  - NO THERAPEUTIC RESPONSE [None]
